FAERS Safety Report 6711546-5 (Version None)
Quarter: 2010Q2

REPORT INFORMATION
  Report Type: 
  Country: None (occurrence: None)
  Receive Date: 20100505
  Receipt Date: 20100422
  Transmission Date: 20101027
  Serious: Yes (Other)
  Sender: FDA-Public Use
  Company Number: PHHY2010US26143

PATIENT
  Sex: Male

DRUGS (4)
  1. VALTURNA [Suspect]
     Dosage: 150/160 MG
     Route: 048
  2. KLOR-CON [Suspect]
     Indication: SWELLING
     Dosage: 10 MEQ
  3. FUROSEMIDE [Suspect]
     Indication: SWELLING
     Dosage: 40 MG
  4. SIMVASTATIN [Concomitant]
     Dosage: 20 MG

REACTIONS (10)
  - DIZZINESS [None]
  - DYSPNOEA [None]
  - DYSSTASIA [None]
  - FUNGAL INFECTION [None]
  - LYME DISEASE [None]
  - OEDEMA PERIPHERAL [None]
  - PRURITUS [None]
  - SKIN IRRITATION [None]
  - SWELLING [None]
  - SWELLING FACE [None]
